FAERS Safety Report 4667708-4 (Version None)
Quarter: 2005Q2

REPORT INFORMATION
  Report Type: 
  Country: None (occurrence: None)
  Receive Date: 20050520
  Receipt Date: 20041222
  Transmission Date: 20051028
  Serious: Yes (Other)
  Sender: FDA-Public Use
  Company Number: PHNU2004DE04290

PATIENT
  Age: 67 Year
  Sex: Female
  Weight: 90 kg

DRUGS (4)
  1. RADIOTHERAPY [Concomitant]
     Indication: RADIOTHERAPY TO BONE
     Route: 065
     Dates: start: 19990331, end: 19990414
  2. DTIC-DOME [Concomitant]
     Indication: METASTATIC MALIGNANT MELANOMA
     Dosage: 200 MG, QD
     Route: 065
     Dates: start: 19990315, end: 19990331
  3. ZOMETA [Suspect]
     Indication: METASTASES TO BONE
     Dosage: 4 MG, QMO
     Dates: start: 20021205
  4. AREDIA [Suspect]
     Indication: METASTASES TO BONE
     Dosage: 90 MG, QMO
     Dates: start: 19990305, end: 20020912

REACTIONS (5)
  - JAW DISORDER [None]
  - METASTASES TO BONE [None]
  - OSTEOLYSIS [None]
  - OSTEONECROSIS [None]
  - RADIOTHERAPY [None]
